FAERS Safety Report 22639458 (Version 1)
Quarter: 2023Q2

REPORT INFORMATION
  Report Type: Spontaneous
  Country: BR (occurrence: BR)
  Receive Date: 20230626
  Receipt Date: 20230626
  Transmission Date: 20230721
  Serious: Yes (Other)
  Sender: FDA-Public Use
  Company Number: BR-BAXTER-2023BAX024710

PATIENT
  Age: 47 Year
  Sex: Female
  Weight: 57 kg

DRUGS (13)
  1. CYCLOPHOSPHAMIDE [Suspect]
     Active Substance: CYCLOPHOSPHAMIDE
     Indication: Chemotherapy
     Dosage: 1 MG, DILUTED WITH 250 ML 0.9% SODIUM CHLORIDE, AS PART OF 3RD CYCLE, DURING 1 HOUR
     Route: 042
     Dates: start: 20230526, end: 20230526
  2. SODIUM CHLORIDE [Suspect]
     Active Substance: SODIUM CHLORIDE
     Indication: Medication dilution
     Dosage: 0.9%,250 ML, USED TO DILUTE 1 MG CYCLOPHOSPHAMIDE, AS PART OF 3RD CYCLE, DURING 1 HOUR
     Route: 042
     Dates: start: 20230526, end: 20230526
  3. FUROSEMIDE [Concomitant]
     Active Substance: FUROSEMIDE
     Dosage: (START DATE: MAY-2023), 20 MG DILUTED WIH 0.9 % SODIUM CHLORIDE, AFTER CHEMOTHERAPY
     Route: 040
  4. SODIUM CHLORIDE [Concomitant]
     Active Substance: SODIUM CHLORIDE
     Indication: Medication dilution
     Dosage: (START DATE: MAY-2023), USED TO DILUTE 20 MG FUROSEMIDE, AFTER CHEMOTHERAPY
     Route: 040
  5. SODIUM CHLORIDE [Concomitant]
     Active Substance: SODIUM CHLORIDE
     Dosage: (START DATE: MAY-2023), 100 ML, USED TO DILUTE 8 MG ONDANSETRON, 15MIN BEFORE CHEMOTHERAPY
     Route: 065
  6. SODIUM CHLORIDE [Concomitant]
     Active Substance: SODIUM CHLORIDE
     Dosage: 100 TO 1000ML, HYDRATION, 1 H BEFORE CHEMOTHERAPY
     Route: 065
  7. ACETAMINOPHEN [Concomitant]
     Active Substance: ACETAMINOPHEN
     Dosage: (START DATE: MAY-2023), 500 TO 1000 MG VO
     Route: 065
  8. VO [Concomitant]
     Dosage: (START DATE: MAY-2023), 500 TO 1000 MG VO
     Route: 065
  9. ONDANSETRON [Concomitant]
     Active Substance: ONDANSETRON
     Dosage: (START DATE: MAY-2023), 8 MG, DILUTED WITH 100ML OF 0.9% SODIUM CHLORIDE, 15MIN BEFORE CHEMOTHERAPY
     Route: 065
  10. PREDNISONE [Concomitant]
     Active Substance: PREDNISONE
     Route: 065
  11. FLUOXETINE [Concomitant]
     Active Substance: FLUOXETINE HYDROCHLORIDE
     Route: 065
  12. GABAPENTIN [Concomitant]
     Active Substance: GABAPENTIN
     Route: 065
  13. CODEINE [Concomitant]
     Active Substance: CODEINE
     Route: 065

REACTIONS (2)
  - Swelling of eyelid [Recovered/Resolved]
  - Nasal pruritus [Recovered/Resolved]

NARRATIVE: CASE EVENT DATE: 20230526
